FAERS Safety Report 6567239-0 (Version None)
Quarter: 2010Q1

REPORT INFORMATION
  Report Type: 
  Country: None (occurrence: None)
  Receive Date: 20100202
  Receipt Date: 20100128
  Transmission Date: 20100710
  Serious: Yes (Other)
  Sender: FDA-Public Use
  Company Number: JP-ABBOTT-10P-087-0622822-00

PATIENT
  Age: 1 Year
  Sex: Female

DRUGS (1)
  1. CEFDINIR [Suspect]
     Indication: DRUG USE FOR UNKNOWN INDICATION
     Route: 048
     Dates: start: 20080501, end: 20080501

REACTIONS (1)
  - OCULOMUCOCUTANEOUS SYNDROME [None]
